APPROVED DRUG PRODUCT: GLIPIZIDE
Active Ingredient: GLIPIZIDE
Strength: 2.5MG
Dosage Form/Route: TABLET;ORAL
Application: A214874 | Product #001
Applicant: RUBICON RESEARCH LTD
Approved: Oct 3, 2023 | RLD: No | RS: No | Type: RX